FAERS Safety Report 19670385 (Version 1)
Quarter: 2021Q3

REPORT INFORMATION
  Report Type: Spontaneous
  Country: US (occurrence: US)
  Receive Date: 20210806
  Receipt Date: 20210806
  Transmission Date: 20211014
  Serious: Yes (Hospitalization)
  Sender: FDA-Public Use
  Company Number: US-SAOL THERAPEUTICS-2021SAO00029

PATIENT
  Age: 58 Year
  Sex: Male
  Weight: 121 kg

DRUGS (10)
  1. ACETAMINOPHEN. [Concomitant]
     Active Substance: ACETAMINOPHEN
  2. METAMUCIL [Concomitant]
     Active Substance: PLANTAGO SEED
  3. ROSUVASTATIN. [Concomitant]
     Active Substance: ROSUVASTATIN
  4. LIORESAL [Suspect]
     Active Substance: BACLOFEN
     Indication: MUSCLE SPASTICITY
     Dosage: 500 ?G, \DAY
     Route: 037
  5. VITAMIN D [Concomitant]
     Active Substance: VITAMIN D NOS
  6. MIRALAX [Concomitant]
     Active Substance: POLYETHYLENE GLYCOL 3350
  7. LIORESAL [Suspect]
     Active Substance: BACLOFEN
     Indication: QUADRIPARESIS
     Dosage: 399 ?G, \DAY
     Route: 037
     Dates: end: 20210227
  8. VITAMIN C [Concomitant]
     Active Substance: ASCORBIC ACID
  9. LEVAQUIN [Concomitant]
     Active Substance: LEVOFLOXACIN
  10. ASA [Concomitant]
     Active Substance: ASPIRIN

REACTIONS (1)
  - Implant site infection [Unknown]

NARRATIVE: CASE EVENT DATE: 202101
